FAERS Safety Report 6438953-2 (Version None)
Quarter: 2009Q4

REPORT INFORMATION
  Report Type: 
  Country: None (occurrence: None)
  Receive Date: 20091113
  Receipt Date: 20091102
  Transmission Date: 20100525
  Serious: Yes (Death)
  Sender: FDA-Public Use
  Company Number: PHEH2009US09717

PATIENT
  Sex: Female

DRUGS (2)
  1. EXJADE [Suspect]
     Indication: MYELODYSPLASTIC SYNDROME
     Dosage: 1000 MG/DAY
     Route: 048
     Dates: start: 20090731, end: 20091102
  2. LEVOTHYROXINE SODIUM [Concomitant]

REACTIONS (2)
  - DEATH [None]
  - DIARRHOEA [None]
